FAERS Safety Report 18999210 (Version 1)
Quarter: 2021Q1

REPORT INFORMATION
  Report Type: Spontaneous
  Country: GB (occurrence: GB)
  Receive Date: 20210311
  Receipt Date: 20210311
  Transmission Date: 20210420
  Serious: Yes (Other)
  Sender: FDA-Public Use
  Company Number: GB-TEVA-2021-GB-1886496

PATIENT
  Age: 55 Year
  Weight: 121.56 kg

DRUGS (9)
  1. PREDNISOLON [Concomitant]
     Active Substance: PREDNISOLONE
  2. VITAMIN K2 [Concomitant]
     Active Substance: MENAQUINONE 6
  3. VITAMIN B12 [Concomitant]
     Active Substance: CYANOCOBALAMIN
  4. CLARITHROMYCIN CITRATE [Suspect]
     Active Substance: CLARITHROMYCIN CITRATE
     Indication: RHEUMATOID ARTHRITIS
     Dosage: 500 MG
     Route: 048
     Dates: start: 20210215, end: 20210216
  5. CALFOVIT D3 [Concomitant]
     Active Substance: CALCIUM PHOSPHATE\CHOLECALCIFEROL
  6. MAGNESIUM ACETATE [Concomitant]
     Active Substance: MAGNESIUM ACETATE
  7. CODEIN [Concomitant]
     Active Substance: CODEINE
  8. CANDESARTAN CILEXETIL. [Concomitant]
     Active Substance: CANDESARTAN CILEXETIL
  9. COD LIVER OIL [Concomitant]
     Active Substance: COD LIVER OIL

REACTIONS (2)
  - Nightmare [Recovering/Resolving]
  - Swelling face [Recovering/Resolving]

NARRATIVE: CASE EVENT DATE: 20210215
